FAERS Safety Report 8927619 (Version 4)
Quarter: 2014Q1

REPORT INFORMATION
  Report Type: Report from Study
  Country: FR (occurrence: FR)
  Receive Date: 20121127
  Receipt Date: 20140131
  Transmission Date: 20141002
  Serious: Yes (Hospitalization)
  Sender: FDA-Public Use
  Company Number: PHHY2012FR095938

PATIENT
  Age: 80 Year
  Sex: Female
  Weight: 66 kg

DRUGS (6)
  1. ACLASTA/ZOLEDRONATE [Suspect]
     Indication: OSTEOPOROTIC FRACTURE
     Dosage: UNK
     Route: 042
     Dates: start: 20110428
  2. ACLASTA/ZOLEDRONATE [Suspect]
     Dosage: UNK
     Route: 042
     Dates: start: 20120512
  3. GLUCOSAMINE HYDROCHLORIDE [Concomitant]
     Dosage: UNK
     Dates: start: 2011
  4. VOLTARENE [Concomitant]
     Dosage: UNK
  5. OFLOCET [Concomitant]
     Dosage: UNK
     Dates: start: 2011, end: 201111
  6. DAFALGAN CODEINE [Concomitant]
     Dosage: UNK
     Dates: start: 2012

REACTIONS (6)
  - Atrioventricular block complete [Unknown]
  - Bundle branch block right [Unknown]
  - Heart rate abnormal [Unknown]
  - Fall [Unknown]
  - Femur fracture [Recovered/Resolved]
  - Pain [Recovered/Resolved]
